FAERS Safety Report 20692996 (Version 1)
Quarter: 2022Q2

REPORT INFORMATION
  Report Type: Spontaneous
  Country: US (occurrence: None)
  Receive Date: 20220407
  Receipt Date: 20220407
  Transmission Date: 20220721
  Serious: Yes (Other)
  Sender: FDA-Public Use
  Company Number: None

PATIENT
  Age: 53 Year
  Sex: Female

DRUGS (25)
  1. OPSUMIT [Suspect]
     Active Substance: MACITENTAN
     Indication: Pulmonary arterial hypertension
     Dosage: 10MG QD ORAL
     Route: 048
     Dates: start: 20170113
  2. LORAZEPAM [Concomitant]
     Active Substance: LORAZEPAM
  3. GABAPENTIN [Concomitant]
     Active Substance: GABAPENTIN
  4. AMITRIPTYLINE [Concomitant]
     Active Substance: AMITRIPTYLINE
  5. MONTELUKAST [Concomitant]
     Active Substance: MONTELUKAST SODIUM
  6. ALBUTEROL NEB SOLN [Concomitant]
  7. RENVELA [Concomitant]
  8. OMEPRAZOLE [Concomitant]
     Active Substance: OMEPRAZOLE
  9. ATENOLOL [Concomitant]
  10. NARCAN [Concomitant]
  11. TRAMADOL [Concomitant]
     Active Substance: TRAMADOL
  12. VELPHORO [Concomitant]
     Active Substance: SUCROFERRIC OXYHYDROXIDE
  13. PREDNISONE [Concomitant]
  14. EMLA [Concomitant]
  15. PANTOPRAZOLE [Concomitant]
  16. ASPIRIN [Concomitant]
  17. CLOBETASOL [Concomitant]
  18. top cream [Concomitant]
  19. CINACALCET [Concomitant]
     Active Substance: CINACALCET
  20. ASTELIN [Concomitant]
     Active Substance: AZELASTINE HYDROCHLORIDE
  21. ALBUTEROL SULFATE [Concomitant]
     Active Substance: ALBUTEROL SULFATE
  22. MIDODRINE [Concomitant]
     Active Substance: MIDODRINE
  23. LEVOTHYROXINE [Concomitant]
     Active Substance: LEVOTHYROXINE
  24. ketotifen opht drop [Concomitant]
  25. NEPHRO VITE RX [Concomitant]
     Active Substance: ASCORBIC ACID\BIOTIN\CALCIUM PANTOTHENATE\CYANOCOBALAMIN\FOLIC ACID\NIACINAMIDE\PYRIDOXINE HYDROCHLO

REACTIONS (4)
  - Altered state of consciousness [None]
  - Asthenia [None]
  - Dyspnoea [None]
  - Hypervolaemia [None]

NARRATIVE: CASE EVENT DATE: 20220305
